FAERS Safety Report 14664511 (Version 4)
Quarter: 2018Q4

REPORT INFORMATION
  Report Type: Spontaneous
  Country: US (occurrence: US)
  Receive Date: 20180321
  Receipt Date: 20181220
  Transmission Date: 20190204
  Serious: Yes (Other)
  Sender: FDA-Public Use
  Company Number: US-PFIZER INC-2018112241

PATIENT
  Age: 62 Year
  Sex: Female
  Weight: 62 kg

DRUGS (12)
  1. LYRICA [Suspect]
     Active Substance: PREGABALIN
     Indication: CONGENITAL NEUROPATHY
     Dosage: 300 MG, 2X/DAY
  2. CYMBALTA [Concomitant]
     Active Substance: DULOXETINE HYDROCHLORIDE
     Indication: NEURALGIA
     Dosage: 60 MG, DAILY
  3. CYMBALTA [Concomitant]
     Active Substance: DULOXETINE HYDROCHLORIDE
     Dosage: 90 MG, 1X/DAY (TAKE ONE 60 MG AND ONE 30 (MG) ONCE A DAY)
  4. CYMBALTA [Concomitant]
     Active Substance: DULOXETINE HYDROCHLORIDE
     Indication: NEUROPATHY PERIPHERAL
     Dosage: 60 MG, 1X/DAY
  5. LYRICA [Suspect]
     Active Substance: PREGABALIN
     Indication: NEUROPATHY PERIPHERAL
  6. ACIPHEX [Concomitant]
     Active Substance: RABEPRAZOLE SODIUM
     Indication: ABDOMINAL DISCOMFORT
     Dosage: UNK UNK, DAILY
  7. RESTORIL [Concomitant]
     Active Substance: TEMAZEPAM
     Dosage: UNK UNK, AS NEEDED
     Dates: start: 2013
  8. LYRICA [Suspect]
     Active Substance: PREGABALIN
     Indication: AUTONOMIC NEUROPATHY
     Dosage: 300 MG, 2X/DAY (300MG X2)
     Dates: start: 201601
  9. LYRICA [Suspect]
     Active Substance: PREGABALIN
     Indication: NEUROPATHY PERIPHERAL
     Dosage: 300 MG, 2X/DAY
  10. SUCRALFATE. [Concomitant]
     Active Substance: SUCRALFATE
     Indication: ABDOMINAL DISCOMFORT
     Dosage: UNK UNK, DAILY
     Dates: start: 2015
  11. RABEPRAZOLE SODIUM. [Concomitant]
     Active Substance: RABEPRAZOLE SODIUM
     Dosage: UNK
     Dates: start: 2015
  12. CYMBALTA [Concomitant]
     Active Substance: DULOXETINE HYDROCHLORIDE
     Indication: NEUROPATHY PERIPHERAL
     Dosage: 90 MG, DAILY
     Dates: start: 201709

REACTIONS (9)
  - Malaise [Unknown]
  - Retching [Unknown]
  - Dehydration [Unknown]
  - Hyperhidrosis [Unknown]
  - Clumsiness [Not Recovered/Not Resolved]
  - Memory impairment [Not Recovered/Not Resolved]
  - Foot fracture [Not Recovered/Not Resolved]
  - Swelling [Unknown]
  - Dry mouth [Not Recovered/Not Resolved]

NARRATIVE: CASE EVENT DATE: 201601
